FAERS Safety Report 6529292-X (Version None)
Quarter: 2010Q1

REPORT INFORMATION
  Report Type: 
  Country: None (occurrence: None)
  Receive Date: 20100107
  Receipt Date: 20091225
  Transmission Date: 20100710
  Serious: Yes (Other)
  Sender: FDA-Public Use
  Company Number: PHHY2009JP52366

PATIENT
  Age: 34 Year
  Sex: Female

DRUGS (2)
  1. TEGRETOL [Suspect]
     Indication: EPILEPSY
     Dosage: 600 MG DAILY
     Route: 048
  2. LIMAS [Suspect]
     Indication: NEUROPSYCHIATRIC LUPUS
     Dosage: 400 MG DAILY
     Route: 048

REACTIONS (3)
  - BRADYCARDIA [None]
  - DISORIENTATION [None]
  - THERAPEUTIC AGENT TOXICITY [None]
